FAERS Safety Report 13495973 (Version 2)
Quarter: 2017Q2

REPORT INFORMATION
  Report Type: Spontaneous
  Country: US (occurrence: US)
  Receive Date: 20170428
  Receipt Date: 20170515
  Transmission Date: 20170830
  Serious: No
  Sender: FDA-Public Use
  Company Number: US-VERTEX PHARMACEUTICALS-2017-002277

PATIENT
  Age: 11 Year
  Sex: Female

DRUGS (12)
  1. RHINOCORT AQUA [Concomitant]
     Active Substance: BUDESONIDE
     Dosage: 2 SPRAY, QD
     Route: 045
     Dates: start: 20170321
  2. HYPERSAL [Concomitant]
     Dosage: 4 ML, ONCE AND TWICE DAILY
     Route: 055
     Dates: start: 20160503
  3. NEO-SYNEPHRINE [Concomitant]
     Active Substance: PHENYLEPHRINE HYDROCHLORIDE
     Indication: NASAL POLYPS
     Dosage: 1 DF, PRN, EVERY SIX HOURS
     Route: 045
     Dates: start: 20170111
  4. PROVENTIL HFA [Concomitant]
     Active Substance: ALBUTEROL SULFATE
     Dosage: ONE TO TWO PUFFS, BID, PRIOR TO AIRWAY CLEARENCE
     Route: 048
  5. TYLENOL [Concomitant]
     Active Substance: ACETAMINOPHEN
     Dosage: 2 DF, EVERY SIX HOURS, PRN
     Dates: start: 20170125
  6. MEPHYTON [Concomitant]
     Active Substance: PHYTONADIONE
     Dosage: 1 DF DAILY ON MONDAY AND FRIDAY (WHILE ON ANTIBIOTICS)
     Route: 048
     Dates: start: 20170112
  7. CHOLECALCIFEROL [Concomitant]
     Active Substance: CHOLECALCIFEROL
     Dosage: 4000 UT, BID
     Route: 048
     Dates: start: 20160503
  8. ORKAMBI [Suspect]
     Active Substance: IVACAFTOR\LUMACAFTOR
     Indication: CYSTIC FIBROSIS
     Dosage: 200-250 MG, BID
     Route: 048
     Dates: start: 20170324, end: 20170504
  9. SINGULAIR [Concomitant]
     Active Substance: MONTELUKAST SODIUM
     Dosage: 1 DF, QD
     Dates: start: 20170321
  10. CREON [Concomitant]
     Active Substance: PANCRELIPASE AMYLASE\PANCRELIPASE LIPASE\PANCRELIPASE PROTEASE
     Dosage: 4 CAPSULES WITH MEALS AND 2 CASULES PER SNACK
     Route: 048
     Dates: start: 20170321
  11. FLONASE [Concomitant]
     Active Substance: FLUTICASONE PROPIONATE
     Indication: NASAL POLYPS
     Dosage: 1 DF, QD
     Dates: start: 20170122
  12. PULMOZYME [Concomitant]
     Active Substance: DORNASE ALFA
     Indication: CYSTIC FIBROSIS
     Dosage: 2.5 ML, QD
     Route: 055
     Dates: start: 20160503

REACTIONS (3)
  - Blood glucose increased [Unknown]
  - Dyspnoea [Unknown]
  - Chest discomfort [Unknown]

NARRATIVE: CASE EVENT DATE: 201704
